FAERS Safety Report 10843646 (Version 1)
Quarter: 2015Q1

REPORT INFORMATION
  Report Type: Report from Study
  Country: SA (occurrence: SA)
  Receive Date: 20150220
  Receipt Date: 20150220
  Transmission Date: 20150721
  Serious: Yes (Other)
  Sender: FDA-Public Use
  Company Number: SA-SA-2015SA019487

PATIENT
  Age: 65 Year
  Sex: Male

DRUGS (4)
  1. GRANULOCYTE COLONY STIMULATING FACTOR [Concomitant]
     Active Substance: GRANULOCYTE COLONY-STIMULATING FACTOR NOS
  2. ALLOPURINOL. [Concomitant]
     Active Substance: ALLOPURINOL
  3. CLOFARABINE [Suspect]
     Active Substance: CLOFARABINE
     Indication: ACUTE MYELOID LEUKAEMIA
     Route: 041
  4. CLOFARABINE [Suspect]
     Active Substance: CLOFARABINE
     Indication: ACUTE MYELOID LEUKAEMIA
     Route: 041

REACTIONS (10)
  - Thrombocytopenia [Unknown]
  - Diarrhoea [Unknown]
  - Sepsis [Unknown]
  - Neutropenia [Unknown]
  - Mucosal inflammation [Unknown]
  - Bacterial infection [Unknown]
  - Cardiac failure [Unknown]
  - Rash [Unknown]
  - Hepatic enzyme increased [Unknown]
  - Vomiting [Unknown]
